FAERS Safety Report 12728143 (Version 1)
Quarter: 2016Q3

REPORT INFORMATION
  Report Type: Spontaneous
  Country: US (occurrence: US)
  Receive Date: 20160907
  Receipt Date: 20160907
  Transmission Date: 20161109
  Serious: Yes (Other)
  Sender: FDA-Public Use
  Company Number: None

PATIENT
  Age: 64 Year
  Sex: Female
  Weight: 74.25 kg

DRUGS (9)
  1. VITAMIN D [Concomitant]
     Active Substance: CHOLECALCIFEROL
  2. VIT B-12 [Concomitant]
  3. ASA [Concomitant]
     Active Substance: ASPIRIN
  4. COLACE [Concomitant]
     Active Substance: DOCUSATE SODIUM
  5. KENALOG CREAM [Concomitant]
  6. OMEGA-3 ETHYL ESTERS 1 GM [Suspect]
     Active Substance: OMEGA-3-ACID ETHYL ESTERS
     Indication: PSORIASIS
     Route: 048
     Dates: start: 20160304, end: 20160812
  7. CRESTOR (GENERIC) [Concomitant]
  8. PREMARIN VAGINAL [Concomitant]
     Active Substance: ESTROGENS, CONJUGATED
  9. MIRALAX [Concomitant]
     Active Substance: POLYETHYLENE GLYCOL 3350

REACTIONS (1)
  - Psoriasis [None]

NARRATIVE: CASE EVENT DATE: 20160801
